FAERS Safety Report 7506599-0 (Version None)
Quarter: 2011Q2

REPORT INFORMATION
  Report Type: 
  Country: None (occurrence: None)
  Receive Date: 20110526
  Receipt Date: 20110510
  Transmission Date: 20111010
  Serious: Yes (Hospitalization)
  Sender: FDA-Public Use
  Company Number: FR-ASTRAZENECA-2011SE27696

PATIENT
  Age: 61 Year
  Sex: Female

DRUGS (15)
  1. NEXIUM [Suspect]
     Route: 048
  2. TRAMADOL HCL [Suspect]
     Route: 048
  3. MIANSERINE [Suspect]
     Route: 048
  4. VERAPAMIL [Suspect]
     Route: 048
     Dates: start: 20110412
  5. TERCIAN [Suspect]
     Route: 048
  6. COUMADIN [Suspect]
     Route: 048
  7. REVATIO [Suspect]
     Route: 048
  8. FLOLAN [Suspect]
     Route: 042
     Dates: start: 20090916
  9. LASIX [Suspect]
     Route: 048
  10. VERAPAMIL [Suspect]
     Route: 048
     Dates: end: 20110411
  11. TRACLEER [Suspect]
     Route: 048
  12. ATARAX [Suspect]
     Route: 048
  13. LORAZEPAM [Suspect]
     Route: 048
  14. LEVOTHYROXINE SODIUM [Suspect]
     Route: 048
  15. ZOLPIDEM [Suspect]
     Route: 048

REACTIONS (2)
  - HAEMORRHAGE [None]
  - THROMBOCYTOPENIA [None]
